FAERS Safety Report 4440754-1 (Version None)
Quarter: 2004Q3

REPORT INFORMATION
  Report Type: 
  Country: None (occurrence: None)
  Receive Date: 20040901
  Receipt Date: 20040812
  Transmission Date: 20050211
  Serious: Yes (Hospitalization)
  Sender: FDA-Public Use
  Company Number: GBWYE950205AUG04

PATIENT
  Age: 47 Year
  Sex: Male

DRUGS (3)
  1. MYAMBUTOL [Suspect]
     Indication: TUBERCULOSIS
     Dosage: 900 MG
     Dates: start: 20040629, end: 20040707
  2. RAFATER (ISONIAZID/PYRAZINAMIDE/RIFAMPICIN) [Suspect]
     Indication: TUBERCULOSIS
     Dosage: 5 TABLETS
     Dates: start: 20040629, end: 20040707
  3. PYRIDOXINE [Concomitant]

REACTIONS (3)
  - ALANINE AMINOTRANSFERASE INCREASED [None]
  - BLOOD ALKALINE PHOSPHATASE INCREASED [None]
  - BLOOD BILIRUBIN INCREASED [None]
